FAERS Safety Report 11773471 (Version 1)
Quarter: 2015Q4

REPORT INFORMATION
  Report Type: Spontaneous
  Country: NL (occurrence: NL)
  Receive Date: 20151124
  Receipt Date: 20151124
  Transmission Date: 20160304
  Serious: Yes (Other)
  Sender: FDA-Public Use
  Company Number: NL-TEVA-611744ISR

PATIENT
  Age: 59 Year
  Sex: Female

DRUGS (1)
  1. CISPLATIN. [Suspect]
     Active Substance: CISPLATIN
     Indication: SMALL CELL LUNG CANCER
     Dosage: 1 MILLIGRAM/MILLILITERS DAILY;

REACTIONS (2)
  - Arterial occlusive disease [Recovered/Resolved with Sequelae]
  - Necrosis ischaemic [Recovered/Resolved with Sequelae]
